FAERS Safety Report 4476396-1 (Version None)
Quarter: 2004Q4

REPORT INFORMATION
  Report Type: 
  Country: None (occurrence: None)
  Receive Date: 20041016
  Receipt Date: 20041007
  Transmission Date: 20050328
  Serious: Yes (Disabling)
  Sender: FDA-Public Use
  Company Number: US-MERCK-0410USA01083

PATIENT
  Age: 73 Year
  Sex: Male

DRUGS (2)
  1. LOTREL [Concomitant]
     Route: 065
  2. VIOXX [Suspect]
     Indication: ARTHRITIS
     Route: 048
     Dates: start: 20000101, end: 20040930

REACTIONS (3)
  - LOCAL SWELLING [None]
  - MASS [None]
  - PAIN IN EXTREMITY [None]
